FAERS Safety Report 6447233-0 (Version None)
Quarter: 2009Q4

REPORT INFORMATION
  Report Type: 
  Country: None (occurrence: None)
  Receive Date: 20091119
  Receipt Date: 20091111
  Transmission Date: 20100525
  Serious: Yes (Hospitalization)
  Sender: FDA-Public Use
  Company Number: PHHO2009JP13377

PATIENT
  Sex: Male
  Weight: 58 kg

DRUGS (16)
  1. ENALAPRIL MALEATE [Suspect]
     Indication: CARDIAC FAILURE
     Dosage: 10 MG, DAILY
     Dates: start: 20091006, end: 20091018
  2. ENALAPRIL MALEATE [Suspect]
     Dosage: 20 MG, DAILY
     Dates: start: 20091019, end: 20091025
  3. BLINDED ALISKIREN ALI+TAB+CF [Suspect]
     Indication: CARDIAC FAILURE
     Dosage: NO TREATMENT
  4. ENALAPRIL MALEATE [Suspect]
     Indication: CARDIAC FAILURE
     Dosage: NO TREATMENT
  5. BLINDED NO TREATMENT RECEIVED NOMED [Suspect]
     Indication: CARDIAC FAILURE
     Dosage: NO TREATMENT
  6. ALDACTONE [Concomitant]
     Indication: CARDIAC FAILURE
  7. ALOSITOL [Concomitant]
     Indication: HYPERURICAEMIA
  8. ARTIST [Concomitant]
     Indication: CARDIAC FAILURE
  9. DIGOSIN [Concomitant]
     Indication: CARDIAC FAILURE
  10. HYALEIN [Concomitant]
     Indication: KERATOCONJUNCTIVITIS SICCA
  11. LASIX [Concomitant]
     Indication: CARDIAC FAILURE
  12. LENDORMIN [Concomitant]
     Indication: INSOMNIA
  13. MEXITIL [Concomitant]
     Indication: ARRHYTHMIA
  14. PARIET [Concomitant]
     Indication: COLITIS ULCERATIVE
  15. PENTASA [Concomitant]
     Indication: COLITIS ULCERATIVE
  16. SUCRALFATE [Concomitant]
     Indication: COLITIS ULCERATIVE

REACTIONS (7)
  - BLOOD PRESSURE DECREASED [None]
  - COLITIS ISCHAEMIC [None]
  - COLITIS ULCERATIVE [None]
  - DEPRESSED LEVEL OF CONSCIOUSNESS [None]
  - GASTROINTESTINAL INFLAMMATION [None]
  - HAEMATOCHEZIA [None]
  - VOMITING [None]
